FAERS Safety Report 9122871 (Version 1)
Quarter: 2013Q1

REPORT INFORMATION
  Report Type: Spontaneous
  Country: CA (occurrence: None)
  Receive Date: 20130130
  Receipt Date: 20130130
  Transmission Date: 20140127
  Serious: Yes (Hospitalization)
  Sender: FDA-Public Use
  Company Number: 1106575

PATIENT
  Age: 2 Year
  Sex: Male
  Weight: 19.96 kg

DRUGS (2)
  1. NIX [Suspect]
     Indication: LICE INFESTATION
     Dosage: TOPICAL APPLICATION  X1?08/31/2012
     Route: 061
     Dates: start: 20120831
  2. TEGRETOL [Concomitant]

REACTIONS (1)
  - Convulsion [None]
